FAERS Safety Report 24962209 (Version 2)
Quarter: 2025Q1

REPORT INFORMATION
  Report Type: Spontaneous
  Country: GB (occurrence: GB)
  Receive Date: 20250212
  Receipt Date: 20250312
  Transmission Date: 20250409
  Serious: Yes (Hospitalization, Other)
  Sender: MYLAN
  Company Number: GB-MYLANLABS-2025M1011937

PATIENT
  Age: 48 Year
  Sex: Male

DRUGS (7)
  1. CLOZARIL [Suspect]
     Active Substance: CLOZAPINE
     Indication: Schizophrenia
     Dosage: UNK, BID (100 MG IN THE MORNING AND 175 MG AT NIGHT)
     Dates: start: 20071112
  2. AMISULPRIDE [Concomitant]
     Active Substance: AMISULPRIDE
     Dosage: 50 MILLIGRAM, PM (AT NIGHT)
  3. CITALOPRAM [Concomitant]
     Active Substance: CITALOPRAM
     Dosage: 40 MILLIGRAM, AM (IN THE MORNING)
  4. PREGABALIN [Concomitant]
     Active Substance: PREGABALIN
     Dosage: UNK, TID (200 MG IN THE MORNING 50 MG LUNCH TIME AND 150 MG AT NIGHT)
  5. PREGABALIN [Concomitant]
     Active Substance: PREGABALIN
     Dosage: UNK (DOSE INCREASED IN CLINIC)
     Dates: start: 20250226
  6. POLYETHYLENE GLYCOL 3350\POTASSIUM CHLORIDE\SODIUM BICARBONATE\SODIUM [Concomitant]
     Active Substance: POLYETHYLENE GLYCOL 3350\POTASSIUM CHLORIDE\SODIUM BICARBONATE\SODIUM CHLORIDE
     Dosage: UNK, QOD (1 TO 2 SACHETS EVERY OTHER DAY)
  7. AMLODIPINE [Concomitant]
     Active Substance: AMLODIPINE BESYLATE
     Dosage: 10 MILLIGRAM, AM (IN THE MORNING)

REACTIONS (8)
  - Hospitalisation [Recovered/Resolved]
  - Psychotic disorder [Unknown]
  - Hallucination, auditory [Unknown]
  - Anxiety [Unknown]
  - Hypersomnia [Unknown]
  - Eosinophil count decreased [Not Recovered/Not Resolved]
  - Hypertension [Unknown]
  - Salivary hypersecretion [Unknown]

NARRATIVE: CASE EVENT DATE: 20241101
